FAERS Safety Report 6029973-0 (Version None)
Quarter: 2009Q1

REPORT INFORMATION
  Report Type: 
  Country: None (occurrence: None)
  Receive Date: 20090107
  Receipt Date: 20090102
  Transmission Date: 20090719
  Serious: Yes (Hospitalization)
  Sender: FDA-Public Use
  Company Number: B0547524A

PATIENT
  Age: 43 Year
  Sex: Female

DRUGS (10)
  1. ABACAVIR SULFATE/LAMIVUDINE [Suspect]
     Indication: HIV INFECTION
     Dosage: 1TAB PER DAY
     Route: 048
     Dates: start: 20081028
  2. BLINDED TRIAL MEDICATION [Suspect]
     Indication: HIV INFECTION
     Route: 048
     Dates: start: 20081028
  3. BLINDED TRIAL MEDICATION [Suspect]
     Route: 048
     Dates: start: 20081028
  4. ADVAIR DISKUS 250/50 [Concomitant]
     Indication: ASTHMA
  5. ALBUTEROL [Concomitant]
     Indication: ASTHMA
  6. DICLOFENAC SODIUM [Concomitant]
     Indication: PAIN
     Dosage: 50MG THREE TIMES PER DAY
  7. VALTREX [Concomitant]
     Dosage: 1G PER DAY
  8. NORVASC [Concomitant]
     Dosage: 10MG PER DAY
  9. SEROQUEL [Concomitant]
     Dosage: 25MG PER DAY
  10. IRON [Concomitant]
     Dosage: 325MG TWICE PER DAY

REACTIONS (15)
  - ARTHRALGIA [None]
  - ASTHENIA [None]
  - BACK PAIN [None]
  - C-REACTIVE PROTEIN INCREASED [None]
  - CANDIDIASIS [None]
  - CHILLS [None]
  - DELIRIUM [None]
  - DRUG HYPERSENSITIVITY [None]
  - HYPERHIDROSIS [None]
  - MYALGIA [None]
  - OROPHARYNGEAL PAIN [None]
  - PAIN [None]
  - PYREXIA [None]
  - SOMNOLENCE [None]
  - VIRAL INFECTION [None]
